FAERS Safety Report 8945879 (Version 1)
Quarter: 2012Q4

REPORT INFORMATION
  Report Type: 
  Country: CA (occurrence: CA)
  Receive Date: 20121205
  Receipt Date: 20121205
  Transmission Date: 20130627
  Serious: Yes (Other)
  Sender: FDA-Public Use
  Company Number: CA-B.I. PHARMACEUTICALS,INC./RIDGEFIELD-2012-CN-02448CN

PATIENT
  Age: 73 Year
  Sex: Female

DRUGS (7)
  1. PRADAX [Suspect]
     Dosage: 300 mg
     Route: 048
  2. IRBESARTAN [Concomitant]
  3. LASIX [Concomitant]
  4. LEVOTHYROXINE [Concomitant]
  5. METFORMIN [Concomitant]
  6. METHYLDOPA [Concomitant]
  7. SIMVASTATIN [Concomitant]

REACTIONS (1)
  - International normalised ratio increased [Not Recovered/Not Resolved]
